FAERS Safety Report 21330624 (Version 1)
Quarter: 2022Q3

REPORT INFORMATION
  Report Type: Spontaneous
  Country: US (occurrence: None)
  Receive Date: 20220913
  Receipt Date: 20220913
  Transmission Date: 20221027
  Serious: No
  Sender: FDA-Public Use
  Company Number: None

PATIENT
  Age: 52 Year
  Sex: Male
  Weight: 92 kg

DRUGS (1)
  1. LISINOPRIL [Suspect]
     Active Substance: LISINOPRIL
     Indication: Hypertension
     Dosage: 20 MG EVERY DAY PO
     Route: 048
     Dates: start: 20210322, end: 20220504

REACTIONS (5)
  - Hypotension [None]
  - Sedation [None]
  - Haemodialysis [None]
  - Acute kidney injury [None]
  - Azotaemia [None]

NARRATIVE: CASE EVENT DATE: 20220504
